FAERS Safety Report 9491392 (Version 1)
Quarter: 2013Q3

REPORT INFORMATION
  Report Type: Spontaneous
  Country: US (occurrence: US)
  Receive Date: 20130830
  Receipt Date: 20130830
  Transmission Date: 20140515
  Serious: Yes (Other)
  Sender: FDA-Public Use
  Company Number: US-PFIZER INC-2013250095

PATIENT
  Age: 43 Year
  Sex: Female
  Weight: 61.22 kg

DRUGS (1)
  1. XANAX [Suspect]
     Indication: ANXIETY
     Dosage: 1 MG, 3X/DAY
     Route: 048
     Dates: start: 2010, end: 20130825

REACTIONS (9)
  - Urinary tract infection [Recovering/Resolving]
  - Anxiety [Unknown]
  - Nervousness [Not Recovered/Not Resolved]
  - Emotional disorder [Unknown]
  - Tachyphrenia [Unknown]
  - Insomnia [Unknown]
  - Balance disorder [Not Recovered/Not Resolved]
  - Hyperhidrosis [Not Recovered/Not Resolved]
  - Cold sweat [Not Recovered/Not Resolved]
